FAERS Safety Report 9401615 (Version 2)
Quarter: 2013Q3

REPORT INFORMATION
  Report Type: Spontaneous
  Country: US (occurrence: US)
  Receive Date: 20130716
  Receipt Date: 20130902
  Transmission Date: 20140515
  Serious: Yes (Hospitalization)
  Sender: FDA-Public Use
  Company Number: US-BIOGENIDEC-2013BI060729

PATIENT
  Age: 63 Year
  Sex: Female

DRUGS (3)
  1. AVONEX [Suspect]
     Indication: MULTIPLE SCLEROSIS
     Route: 030
     Dates: start: 20050927, end: 201307
  2. AMPYRA [Concomitant]
  3. TECFIDERA [Concomitant]

REACTIONS (3)
  - Fall [Not Recovered/Not Resolved]
  - Terminal state [Unknown]
  - Pain [Unknown]
